FAERS Safety Report 18492181 (Version 2)
Quarter: 2020Q4

REPORT INFORMATION
  Report Type: Spontaneous
  Country: US (occurrence: US)
  Receive Date: 20201111
  Receipt Date: 20201214
  Transmission Date: 20210114
  Serious: No
  Sender: FDA-Public Use
  Company Number: US-PFIZER INC-2020443999

PATIENT
  Age: 63 Year
  Sex: Female

DRUGS (1)
  1. XELJANZ [Suspect]
     Active Substance: TOFACITINIB CITRATE
     Indication: RHEUMATOID ARTHRITIS
     Dosage: 5 MG, 2X/DAY
     Route: 048
     Dates: start: 202009

REACTIONS (9)
  - Fibromyalgia [Unknown]
  - Fatigue [Unknown]
  - Product dose omission issue [Unknown]
  - Joint stiffness [Unknown]
  - Osteoarthritis [Unknown]
  - Cystitis [Unknown]
  - Arthralgia [Unknown]
  - Sensitivity to weather change [Unknown]
  - Back pain [Unknown]

NARRATIVE: CASE EVENT DATE: 2020
